FAERS Safety Report 17478708 (Version 1)
Quarter: 2020Q1

REPORT INFORMATION
  Report Type: Spontaneous
  Country: IT (occurrence: IT)
  Receive Date: 20200228
  Receipt Date: 20200228
  Transmission Date: 20200409
  Serious: Yes (Other)
  Sender: FDA-Public Use
  Company Number: IT-MYLANLABS-2020M1021749

PATIENT
  Age: 75 Year
  Sex: Male

DRUGS (2)
  1. BENDAMUSTINE HYDROCHLORIDE. [Suspect]
     Active Substance: BENDAMUSTINE HYDROCHLORIDE
     Indication: WALDENSTROM^S MACROGLOBULINAEMIA
     Dosage: UNK UNK, 6 CYCLES
     Route: 065
  2. LEVETIRACETAM. [Suspect]
     Active Substance: LEVETIRACETAM
     Indication: PRODUCT USED FOR UNKNOWN INDICATION
     Dosage: UNK
     Route: 065

REACTIONS (6)
  - Cytomegalovirus chorioretinitis [Recovered/Resolved]
  - Hallucination, visual [Recovered/Resolved]
  - Cytomegalovirus gastritis [Recovered/Resolved]
  - Encephalitis cytomegalovirus [Recovered/Resolved]
  - Lymphopenia [Not Recovered/Not Resolved]
  - Cytomegalovirus colitis [Recovered/Resolved]
